FAERS Safety Report 21272924 (Version 1)
Quarter: 2022Q3

REPORT INFORMATION
  Report Type: Spontaneous
  Country: GB (occurrence: GB)
  Receive Date: 20220831
  Receipt Date: 20220831
  Transmission Date: 20221027
  Serious: Yes (Hospitalization)
  Sender: FDA-Public Use
  Company Number: GB-SUN PHARMACEUTICAL INDUSTRIES LTD-2022R1-352859

PATIENT
  Sex: Male

DRUGS (25)
  1. ASCORBIC ACID [Suspect]
     Active Substance: ASCORBIC ACID
     Indication: Product used for unknown indication
     Dosage: UNK
     Route: 065
  2. CHOLECALCIFEROL [Suspect]
     Active Substance: CHOLECALCIFEROL
     Indication: Product used for unknown indication
     Dosage: 400 INTERNATIONAL UNIT, DAILY
     Route: 065
  3. FOLIC ACID [Suspect]
     Active Substance: FOLIC ACID
     Indication: Product used for unknown indication
     Dosage: 400 MICROGRAM, DAILY
     Route: 065
  4. CHONDROITIN SULFATE (BOVINE)\GLUCOSAMINE SULFATE [Suspect]
     Active Substance: CHONDROITIN SULFATE (BOVINE)\GLUCOSAMINE SULFATE
     Indication: Product used for unknown indication
     Dosage: UNK
     Route: 065
  5. NIACIN [Suspect]
     Active Substance: NIACIN
     Indication: Product used for unknown indication
     Dosage: 16 MILLIGRAM, DAILY
     Route: 065
  6. OMEGA 3 [Suspect]
     Active Substance: CAPSAICIN
     Indication: Product used for unknown indication
     Dosage: 2000 MILLIGRAM, BID
     Route: 065
  7. PYRIDOXINE [Suspect]
     Active Substance: PYRIDOXINE
     Indication: Product used for unknown indication
     Dosage: UNK
     Route: 065
  8. ASTAXANTHIN [Suspect]
     Active Substance: ASTAXANTHIN
     Indication: Product used for unknown indication
     Dosage: UNK (18 MG)
     Route: 065
  9. CALCIUM OROTATE [Suspect]
     Active Substance: CALCIUM OROTATE
     Indication: Product used for unknown indication
     Dosage: UNK (1000 MG)
     Route: 065
  10. CHOLINE [Suspect]
     Active Substance: CHOLINE
     Indication: Product used for unknown indication
     Dosage: UNK (100 MG)
     Route: 065
  11. GLYCINE [Suspect]
     Active Substance: GLYCINE
     Indication: Product used for unknown indication
     Dosage: UNK (1 G)
     Route: 065
  12. LYSINE [Suspect]
     Active Substance: LYSINE
     Indication: Product used for unknown indication
     Dosage: UNK (1000-1500 UG, DAILY)
     Route: 065
  13. LUGOL [Suspect]
     Active Substance: IODINE\POTASSIUM IODIDE
     Indication: Product used for unknown indication
     Dosage: UNK (15% ONE DROP)
     Route: 065
  14. MAGNESIUM CITRATE [Suspect]
     Active Substance: MAGNESIUM CITRATE
     Indication: Product used for unknown indication
     Dosage: UNK (1480 MG)
     Route: 065
  15. MAGNESIUM MALATE [Suspect]
     Active Substance: MAGNESIUM MALATE
     Indication: Product used for unknown indication
     Dosage: UNK (1000 MG)
     Route: 065
  16. ACETYLCYSTEINE [Suspect]
     Active Substance: ACETYLCYSTEINE
     Indication: Product used for unknown indication
     Dosage: UNK (600-1800 MG, DAILY)
     Route: 065
  17. RIBOFLAVIN [Suspect]
     Active Substance: RIBOFLAVIN
     Indication: Product used for unknown indication
     Dosage: UNK
     Route: 065
  18. SODIUM CHLORIDE [Suspect]
     Active Substance: SODIUM CHLORIDE
     Indication: Product used for unknown indication
     Dosage: UNK
     Route: 065
  19. SODIUM BORATE [Suspect]
     Active Substance: SODIUM BORATE
     Indication: Product used for unknown indication
     Dosage: UNK
     Route: 065
  20. SELENIUM [Suspect]
     Active Substance: SELENIUM
     Indication: Product used for unknown indication
     Dosage: UNK
     Route: 065
  21. DIETARY SUPPLEMENT [Suspect]
     Active Substance: DIETARY SUPPLEMENT
     Indication: Product used for unknown indication
     Dosage: UNK (1000 UG)
     Route: 065
  22. TAURINE [Suspect]
     Active Substance: TAURINE
     Indication: Product used for unknown indication
     Dosage: UNK (1-2 G, DAILY)
     Route: 065
  23. MENAQUINONE 6 [Suspect]
     Active Substance: MENAQUINONE 6
     Indication: Product used for unknown indication
     Dosage: UNK (100-300 UG, DAILY)
     Route: 065
  24. DIETARY SUPPLEMENT [Suspect]
     Active Substance: DIETARY SUPPLEMENT
     Indication: Product used for unknown indication
     Dosage: UNK (N 400)
     Route: 065
  25. ZINC PICOLINATE [Suspect]
     Active Substance: ZINC PICOLINATE
     Indication: Product used for unknown indication
     Dosage: 11 MILLIGRAM, DAILY
     Route: 065

REACTIONS (3)
  - Intentional product misuse [Unknown]
  - Toxicity to various agents [Unknown]
  - Hypercalcaemia [Recovered/Resolved]
